FAERS Safety Report 19767504 (Version 2)
Quarter: 2021Q3

REPORT INFORMATION
  Report Type: Spontaneous
  Country: US (occurrence: US)
  Receive Date: 20210830
  Receipt Date: 20210921
  Transmission Date: 20211014
  Serious: Yes (Other)
  Sender: FDA-Public Use
  Company Number: US-MYLANLABS-2021M1055965

PATIENT
  Sex: Male
  Weight: 76 kg

DRUGS (2)
  1. MUSE [Suspect]
     Active Substance: ALPROSTADIL
     Dosage: 500 MICROGRAM,AS NEEDED
     Route: 066
  2. MUSE [Suspect]
     Active Substance: ALPROSTADIL
     Indication: ERECTILE DYSFUNCTION
     Dosage: 250 MICROGRAM, AS NEEDED
     Route: 066
     Dates: end: 20210822

REACTIONS (2)
  - Drug ineffective [Unknown]
  - Product quality issue [Unknown]
